FAERS Safety Report 11714474 (Version 1)
Quarter: 2015Q4

REPORT INFORMATION
  Report Type: Spontaneous
  Country: ZA (occurrence: ZA)
  Receive Date: 20151109
  Receipt Date: 20151109
  Transmission Date: 20160304
  Serious: Yes (Death, Other)
  Sender: FDA-Public Use
  Company Number: ZA-009507513-1511ZAF002285

PATIENT
  Age: 62 Year
  Sex: Female

DRUGS (1)
  1. CANCIDAS [Suspect]
     Active Substance: CASPOFUNGIN ACETATE
     Dosage: UNK
     Dates: start: 201508, end: 201508

REACTIONS (2)
  - Cerebral haematoma [Unknown]
  - Death [Fatal]

NARRATIVE: CASE EVENT DATE: 201508
